FAERS Safety Report 10349736 (Version 1)
Quarter: 2014Q3

REPORT INFORMATION
  Report Type: Spontaneous
  Country: US (occurrence: None)
  Receive Date: 20140728
  Receipt Date: 20140728
  Transmission Date: 20150326
  Serious: Yes (Other)
  Sender: FDA-Public Use
  Company Number: None

PATIENT
  Age: 65 Year
  Sex: Female
  Weight: 65.77 kg

DRUGS (2)
  1. BONIVA [Suspect]
     Active Substance: IBANDRONATE SODIUM
     Indication: BREAST CANCER
     Dosage: 1 PILL MONTHLY  ONCE A MONTH TAKEN BY MOUTH
     Route: 048
  2. BONIVA [Suspect]
     Active Substance: IBANDRONATE SODIUM
     Dosage: 1 PILL MONTHLY  ONCE A MONTH TAKEN BY MOUTH
     Route: 048

REACTIONS (6)
  - Influenza like illness [None]
  - Asthenia [None]
  - Weight decreased [None]
  - Vomiting [None]
  - Diarrhoea [None]
  - Hypophagia [None]
